FAERS Safety Report 17262087 (Version 3)
Quarter: 2021Q3

REPORT INFORMATION
  Report Type: Spontaneous
  Country: FR (occurrence: FR)
  Receive Date: 20200113
  Receipt Date: 20210827
  Transmission Date: 20211014
  Serious: Yes (Death, Hospitalization, Other)
  Sender: FDA-Public Use
  Company Number: FR-PFIZER INC-2020010080

PATIENT
  Age: 71 Year
  Sex: Male
  Weight: 65 kg

DRUGS (11)
  1. CYCLOPHOSPHAMIDE. [Suspect]
     Active Substance: CYCLOPHOSPHAMIDE
     Indication: PLASMA CELL LEUKAEMIA
     Dosage: 300 MG/M2, WEEKLY (SECOND AND THIRD CHEMOTHERAPY CYCLES)
     Dates: start: 2018, end: 2018
  2. INDAPAMIDE. [Concomitant]
     Active Substance: INDAPAMIDE
     Indication: HYPERTENSION
     Dosage: UNK
  3. DOXORUBICIN HCL [Suspect]
     Active Substance: DOXORUBICIN HYDROCHLORIDE
     Indication: PLASMA CELL LEUKAEMIA
     Dosage: 36 MG/M2, CYCLIC (FOURTH CHEMOTHERAPY CYCLE)
     Dates: start: 2018, end: 201811
  4. DEXAMETHASONE. [Suspect]
     Active Substance: DEXAMETHASONE
     Dosage: 40 MG, WEEKLY (SECOND AND THIRD CHEMOTHERAPY CYCLES)
     Dates: start: 2018, end: 201811
  5. NEBIVOLOL. [Concomitant]
     Active Substance: NEBIVOLOL
     Indication: HYPERTENSION
     Dosage: UNK
  6. BORTEZOMIB. [Suspect]
     Active Substance: BORTEZOMIB
     Indication: PLASMA CELL LEUKAEMIA
     Dosage: 1.3 MG/M2, 2X/WEEK (FIRST CHEMOTHERAPY CYCLE)
     Dates: start: 2018, end: 201811
  7. DEXAMETHASONE. [Suspect]
     Active Substance: DEXAMETHASONE
     Indication: PLASMA CELL LEUKAEMIA
     Dosage: 0.5 MG/KG, 2X/WEEK (FIRST CHEMOTHERAPY CYCLE)
     Dates: start: 2018, end: 2018
  8. BORTEZOMIB. [Suspect]
     Active Substance: BORTEZOMIB
     Dosage: 1.3 MG/M2, 2X/WEEK (SECOND AND THIRD CHEMOTHERAPY CYCLES)
     Dates: start: 2018, end: 201811
  9. BORTEZOMIB. [Suspect]
     Active Substance: BORTEZOMIB
     Dosage: 1.3 MG/M2, 2X/WEEK (FOURTH CHEMOTHERAPY CYCLE)
     Dates: start: 2018, end: 201811
  10. DEXAMETHASONE. [Suspect]
     Active Substance: DEXAMETHASONE
     Dosage: 40 MG, WEEKLY (FOURTH CHEMOTHERAPY CYCLE)
     Dates: start: 2018, end: 201811
  11. PAMIDRONIC ACID [Concomitant]
     Active Substance: PAMIDRONIC ACID
     Indication: HYPERCALCAEMIA
     Dosage: 60 MG, 1X/DAY
     Dates: start: 2018

REACTIONS (2)
  - General physical health deterioration [Unknown]
  - Neuropathy peripheral [Unknown]

NARRATIVE: CASE EVENT DATE: 2018
